FAERS Safety Report 17191719 (Version 6)
Quarter: 2025Q1

REPORT INFORMATION
  Report Type: Spontaneous
  Country: US (occurrence: US)
  Receive Date: 20191223
  Receipt Date: 20250203
  Transmission Date: 20250409
  Serious: Yes (Disabling, Other)
  Sender: PFIZER
  Company Number: US-PFIZER INC-2019548854

PATIENT
  Age: 71 Year
  Sex: Female
  Weight: 77.11 kg

DRUGS (7)
  1. VYNDAMAX [Suspect]
     Active Substance: TAFAMIDIS
     Indication: Amyloidosis
     Dosage: IN THE MORNING
     Route: 048
     Dates: start: 20191115
  2. VYNDAMAX [Suspect]
     Active Substance: TAFAMIDIS
     Indication: Cardiac amyloidosis
  3. AMARYL [Concomitant]
     Active Substance: GLIMEPIRIDE
     Indication: Diabetes mellitus
     Route: 048
  4. METFORMIN [Concomitant]
     Active Substance: METFORMIN HYDROCHLORIDE
     Indication: Diabetes mellitus
     Dosage: 1000 MG, 2X/DAY (1000MG TABLETS TWICE A DAY BY MOUTH)
     Route: 048
  5. TAPAZOLE [Concomitant]
     Active Substance: METHIMAZOLE
     Indication: Hypothyroidism
     Dosage: TAKE 1.5 TABLETS BY MOUTH IN THE MORNING
     Route: 048
  6. TRESIBA [Concomitant]
     Active Substance: INSULIN DEGLUDEC
     Indication: Diabetes mellitus
     Dosage: 20 IU, DAILY(20 UNITS IN THE EVENING SUBCUTANEOUS INJECTION)
     Route: 058
  7. NOVOLOG [Concomitant]
     Active Substance: INSULIN ASPART
     Indication: Diabetes mellitus

REACTIONS (5)
  - Foot fracture [Not Recovered/Not Resolved]
  - Condition aggravated [Not Recovered/Not Resolved]
  - Diabetic foot [Not Recovered/Not Resolved]
  - Fall [Unknown]
  - Foot deformity [Unknown]

NARRATIVE: CASE EVENT DATE: 20191101
